FAERS Safety Report 21425126 (Version 2)
Quarter: 2022Q4

REPORT INFORMATION
  Report Type: Report from Study
  Country: US (occurrence: US)
  Receive Date: 20221008
  Receipt Date: 20221012
  Transmission Date: 20230113
  Serious: Yes (Hospitalization)
  Sender: FDA-Public Use
  Company Number: US-ABBVIE-4143451

PATIENT
  Age: 61 Year
  Sex: Male

DRUGS (1)
  1. VENCLEXTA [Suspect]
     Active Substance: VENETOCLAX
     Indication: Chronic lymphocytic leukaemia
     Route: 048

REACTIONS (9)
  - Hospitalisation [Unknown]
  - Aphasia [Unknown]
  - Fatigue [Unknown]
  - Peripheral swelling [Unknown]
  - Dyspnoea [Unknown]
  - Muscle spasms [Unknown]
  - Pulmonary oedema [Unknown]
  - Musculoskeletal stiffness [Unknown]
  - Adverse reaction [Unknown]

NARRATIVE: CASE EVENT DATE: 20221007
